FAERS Safety Report 6614373-2 (Version None)
Quarter: 2010Q1

REPORT INFORMATION
  Report Type: 
  Country: None (occurrence: None)
  Receive Date: 20100304
  Receipt Date: 20100222
  Transmission Date: 20100710
  Serious: Yes (Other)
  Sender: FDA-Public Use
  Company Number: US-MYLANLABS-2007S1005328

PATIENT
  Age: 11 Year
  Sex: Female

DRUGS (7)
  1. MERCAPTAMINE BITARTRATE [Suspect]
     Indication: CYSTINOSIS
     Route: 048
     Dates: start: 19961106
  2. MERCAPTAMINE BITARTRATE [Suspect]
     Route: 048
     Dates: end: 20070701
  3. MERCAPTAMINE BITARTRATE [Suspect]
     Route: 048
     Dates: start: 20070101
  4. POLYCITRA-LC [Concomitant]
     Dates: start: 19960101
  5. 1-ALPHA-HYDROXYCHOLECALCIFEROL [Concomitant]
     Dates: start: 20050621
  6. ENALAPRIL MALEATE [Concomitant]
     Dates: start: 20060727
  7. EPOETIN [Concomitant]

REACTIONS (7)
  - ABDOMINAL PAIN [None]
  - ANAEMIA [None]
  - ANTINUCLEAR ANTIBODY POSITIVE [None]
  - CARDIOLIPIN ANTIBODY POSITIVE [None]
  - HYPOALBUMINAEMIA [None]
  - LUPUS-LIKE SYNDROME [None]
  - PROTEINURIA [None]
